FAERS Safety Report 20785347 (Version 1)
Quarter: 2022Q2

REPORT INFORMATION
  Report Type: Report from Study
  Country: US (occurrence: US)
  Receive Date: 20220504
  Receipt Date: 20220504
  Transmission Date: 20220721
  Serious: Yes (Other)
  Sender: FDA-Public Use
  Company Number: US-JAZZ-2022-US-014025

PATIENT
  Sex: Female

DRUGS (4)
  1. XYREM [Suspect]
     Active Substance: SODIUM OXYBATE
     Indication: Narcolepsy
     Dosage: 4G/3.5G
  2. AIMOVIG [Concomitant]
     Active Substance: ERENUMAB-AOOE
     Dosage: 0000 70 MG/ML AUTOINJECTOR
     Dates: start: 20220426
  3. VITAMIN D2 [Concomitant]
     Active Substance: ERGOCALCIFEROL
     Dosage: 0000 (50,000 UNIT)
     Dates: start: 20220426
  4. COLESTID [Concomitant]
     Active Substance: COLESTIPOL HYDROCHLORIDE
     Dosage: 0000
     Dates: start: 20220426

REACTIONS (5)
  - Intracranial pressure increased [Unknown]
  - Blood cholesterol increased [Unknown]
  - Hiatus hernia [Unknown]
  - Anxiety [Unknown]
  - Diarrhoea [Unknown]
